FAERS Safety Report 11830326 (Version 3)
Quarter: 2015Q4

REPORT INFORMATION
  Report Type: Spontaneous
  Country: US (occurrence: US)
  Receive Date: 20151214
  Receipt Date: 20151214
  Transmission Date: 20160305
  Serious: Yes (Disabling, Other)
  Sender: FDA-Public Use
  Company Number: US-JNJFOC-20151112827

PATIENT
  Age: 35 Year
  Sex: Female

DRUGS (2)
  1. LEVAQUIN [Suspect]
     Active Substance: LEVOFLOXACIN
     Indication: COUGH
     Dosage: 5 TABLETS
     Route: 065
  2. LEVAQUIN [Suspect]
     Active Substance: LEVOFLOXACIN
     Indication: BRONCHITIS
     Dosage: 5 TABLETS
     Route: 065

REACTIONS (10)
  - Weight decreased [Unknown]
  - Tremor [Unknown]
  - Neuropathy peripheral [Unknown]
  - Arthralgia [Unknown]
  - Speech disorder [Unknown]
  - Vertigo [Unknown]
  - Palpitations [Unknown]
  - Cognitive disorder [Unknown]
  - Insomnia [Unknown]
  - Gastrointestinal disorder [Unknown]
